FAERS Safety Report 4332084-3 (Version None)
Quarter: 2004Q2

REPORT INFORMATION
  Report Type: 
  Country: None (occurrence: None)
  Receive Date: 20040405
  Receipt Date: 20040401
  Transmission Date: 20050107
  Serious: Yes (Life-Threatening)
  Sender: FDA-Public Use
  Company Number: IT-ROCHE-363418

PATIENT
  Age: 92 Year
  Sex: Female

DRUGS (4)
  1. DIUREMID [Suspect]
     Indication: CARDIAC FAILURE
     Route: 048
     Dates: start: 20031227, end: 20031229
  2. ADALAT [Concomitant]
     Route: 048
  3. ENAPREN [Concomitant]
     Route: 048
  4. NITROGLYCERIN [Concomitant]
     Dosage: DRUG REPORTED AS 7DERMATRANS, FORMULATION 10MG/24H PATCH.
     Route: 062

REACTIONS (1)
  - LEUKOPENIA [None]
